FAERS Safety Report 21535845 (Version 3)
Quarter: 2023Q1

REPORT INFORMATION
  Report Type: Spontaneous
  Country: US (occurrence: US)
  Receive Date: 20221101
  Receipt Date: 20230123
  Transmission Date: 20230417
  Serious: No
  Sender: FDA-Public Use
  Company Number: US-LUPIN PHARMACEUTICALS INC.-2022-12737

PATIENT

DRUGS (38)
  1. OXYCODONE [Suspect]
     Active Substance: OXYCODONE
     Indication: Appendix disorder
     Dosage: UNK
     Route: 048
  2. CEFDINIR [Suspect]
     Active Substance: CEFDINIR
     Indication: Product used for unknown indication
     Dosage: UNK
     Route: 065
  3. PENICILLIN [Suspect]
     Active Substance: PENICILLIN
     Indication: Product used for unknown indication
     Dosage: UNK
     Route: 065
  4. OMEPRAZOLE [Concomitant]
     Active Substance: OMEPRAZOLE
     Indication: Prophylaxis
     Dosage: 40 MG, BID
     Route: 048
     Dates: start: 2018
  5. ALBUTEROL SULFATE [Concomitant]
     Active Substance: ALBUTEROL SULFATE
     Indication: Asthma
     Dosage: UNK, BID (AS NEEDED FOR SHORTNESS OF BREATH OR WHEEZING)
     Route: 048
  6. ALBUTEROL SULFATE [Concomitant]
     Active Substance: ALBUTEROL SULFATE
     Indication: Chronic obstructive pulmonary disease
  7. ALBUTEROL SULFATE [Concomitant]
     Active Substance: ALBUTEROL SULFATE
     Indication: Asthma
     Dosage: UNK, (INHALE 1 PUFF BY MOUTH EVERY 4 TO 6 HOURS AS NEEDED FOR SHORTNESS OF BREATH OR WHEEZING
  8. ALBUTEROL SULFATE [Concomitant]
     Active Substance: ALBUTEROL SULFATE
     Indication: Chronic obstructive pulmonary disease
  9. BUDESONIDE\FORMOTEROL\GLYCOPYRRONIUM [Concomitant]
     Active Substance: BUDESONIDE\FORMOTEROL\GLYCOPYRRONIUM
     Indication: Asthma
     Dosage: UNK, BID
     Route: 048
  10. BUDESONIDE\FORMOTEROL\GLYCOPYRRONIUM [Concomitant]
     Active Substance: BUDESONIDE\FORMOTEROL\GLYCOPYRRONIUM
     Indication: Chronic obstructive pulmonary disease
  11. CETIRIZINE HYDROCHLORIDE [Concomitant]
     Active Substance: CETIRIZINE HYDROCHLORIDE
     Indication: Hypersensitivity
     Dosage: 10 MG, QD (1 TAB BY MOUTH ONCE DAILY))
     Route: 048
  12. COENZYME Q10 [Concomitant]
     Active Substance: DIETARY SUPPLEMENT\UBIDECARENONE
     Indication: General physical condition
     Dosage: 1 DOSAGE FORM, QD (1 CAP BY MOUTH ONCE DAILY))
     Route: 048
  13. COENZYME Q10 [Concomitant]
     Active Substance: DIETARY SUPPLEMENT\UBIDECARENONE
     Dosage: UNK (FOUR TIMES WEEKLY)
     Route: 048
  14. BREO ELLIPTA [Concomitant]
     Active Substance: FLUTICASONE FUROATE\VILANTEROL TRIFENATATE
     Indication: Asthma
     Dosage: UNK, QD
     Route: 048
  15. BREO ELLIPTA [Concomitant]
     Active Substance: FLUTICASONE FUROATE\VILANTEROL TRIFENATATE
     Indication: Chronic obstructive pulmonary disease
  16. FLUTICASONE PROPIONATE [Concomitant]
     Active Substance: FLUTICASONE PROPIONATE
     Indication: Hypersensitivity
     Dosage: UNK, PRN (USE 1 SPRAY IN EACH NOSTRILS THREE DAILY AS NEEDED)
     Route: 045
  17. FUROSEMIDE [Concomitant]
     Active Substance: FUROSEMIDE
     Indication: Fluid retention
     Dosage: 20 MG (HALF TABLET 2 OR 3 TIMES A WEEK)
     Route: 048
  18. GARLIC [Concomitant]
     Active Substance: GARLIC
     Indication: General physical condition
     Dosage: 1200 MG, QD
     Route: 048
  19. HYDRALAZINE HCL [Concomitant]
     Active Substance: HYDRALAZINE HYDROCHLORIDE
     Indication: Hypertension
     Dosage: 25 MG, TID
     Route: 048
  20. IRON [Concomitant]
     Active Substance: IRON
     Indication: Iron deficiency
     Dosage: 3 DOSAGE FORM (ONCE WEEKLY WITH LUNCH)
     Route: 048
  21. MAGNESIUM [Concomitant]
     Active Substance: MAGNESIUM
     Indication: General physical condition
     Dosage: 3 DOSAGE FORM (ONCE WEEKLY)
     Route: 048
  22. MONTELUKAST [Concomitant]
     Active Substance: MONTELUKAST SODIUM
     Indication: Hypersensitivity
     Dosage: 10 MG, QD (AT BED TIME)
     Route: 048
  23. CALCIUM [Concomitant]
     Active Substance: CALCIUM
     Indication: Bone disorder
     Dosage: 3 DOSAGE FORM (WEEKLY)
     Route: 048
  24. DIETARY SUPPLEMENT [Concomitant]
     Active Substance: DIETARY SUPPLEMENT
     Indication: General physical condition
     Dosage: 4 DOSAGE FORM, QD
     Route: 048
  25. POTASSIUM [Concomitant]
     Active Substance: POTASSIUM
     Indication: General physical condition
     Dosage: 3 DOSAGE FORM (ONCE WEEKLY)
     Route: 048
  26. HERBALS\SAW PALMETTO [Concomitant]
     Active Substance: HERBALS\SAW PALMETTO
     Indication: General physical condition
     Dosage: 500 MG, QD
     Route: 048
  27. SIMVASTATIN [Concomitant]
     Active Substance: SIMVASTATIN
     Indication: Blood cholesterol increased
     Dosage: 40 MG, QD (AT BED TIME)
     Route: 048
  28. VYNDAMAX [Concomitant]
     Active Substance: TAFAMIDIS
     Indication: Amyloidosis
     Dosage: 61 MG, QD
     Route: 048
  29. VYNDAMAX [Concomitant]
     Active Substance: TAFAMIDIS
     Indication: Cardiomyopathy
  30. VYNDAMAX [Concomitant]
     Active Substance: TAFAMIDIS
     Indication: Cardiac disorder
  31. TAMSULOSIN HYDROCHLORIDE [Concomitant]
     Active Substance: TAMSULOSIN HYDROCHLORIDE
     Indication: Prostatomegaly
     Dosage: 0.4 MG, QD (AT NIGHT)
     Route: 048
  32. HERBALS\TURMERIC [Concomitant]
     Active Substance: HERBALS\TURMERIC
     Indication: General physical condition
     Dosage: 4 DOSAGE FORM (WEEKLY)
     Route: 048
  33. VITAMIN C [Concomitant]
     Active Substance: ASCORBIC ACID
     Indication: General physical condition
     Dosage: 1000 MG, QD
     Route: 048
  34. VITAMIN D3 [Concomitant]
     Active Substance: CHOLECALCIFEROL
     Indication: Vitamin D deficiency
     Dosage: 125 MCG, QD
     Route: 048
  35. VITAMIN E [Concomitant]
     Active Substance: .ALPHA.-TOCOPHEROL
     Indication: General physical condition
     Dosage: 180 MG, QD
     Route: 048
  36. WARFARIN SODIUM [Concomitant]
     Active Substance: WARFARIN SODIUM
     Indication: Anticoagulant therapy
     Dosage: UNK (TAKE 1/2 TABLET (3.75MG) BY MOUTH ONE TIME A DAY ON SUNDAY, TUESDAYS, WEDNESDAYS AND THURSDAYS.
     Route: 048
  37. ZINC [Concomitant]
     Active Substance: ZINC
     Indication: General physical condition
     Dosage: 50 MG, QD
     Route: 048
  38. FINASTERIDE [Concomitant]
     Active Substance: FINASTERIDE
     Indication: Product used for unknown indication
     Dosage: UNK
     Route: 065

REACTIONS (4)
  - Diarrhoea [Unknown]
  - Constipation [Unknown]
  - Drug hypersensitivity [Unknown]
  - Off label use [Unknown]
